FAERS Safety Report 9577247 (Version 1)
Quarter: 2013Q4

REPORT INFORMATION
  Report Type: Spontaneous
  Country: US (occurrence: US)
  Receive Date: 20131001
  Receipt Date: 20131001
  Transmission Date: 20140711
  Serious: No
  Sender: FDA-Public Use
  Company Number: US-AMGEN-USASP2013006954

PATIENT
  Sex: Female

DRUGS (13)
  1. ENBREL [Suspect]
     Indication: PRODUCT USED FOR UNKNOWN INDICATION
     Dosage: 50 MG, EVERY 7 DAYS
     Route: 058
  2. CYMBALTA [Concomitant]
     Dosage: 60 MG, UNK
  3. SOMA [Concomitant]
     Dosage: 250 MG, UNK
  4. METHOTREXATE [Concomitant]
     Dosage: 2.5 MG, UNK
  5. NEURONTIN [Concomitant]
     Dosage: 600 MG, UNK
  6. FENTANYL [Concomitant]
     Dosage: 25 MUG/HR, DIS
  7. CLINDAMYCIN [Concomitant]
     Dosage: 1%
  8. NEXIUM                             /01479303/ [Concomitant]
     Dosage: 20 MG, UNK
  9. LORTAB                             /00917501/ [Concomitant]
     Dosage: 7.5-500
  10. VITAMIN D3 [Concomitant]
     Dosage: 2000 UNIT, UNK
  11. FISH OIL [Concomitant]
     Dosage: UNK
  12. CALCIUM [Concomitant]
     Dosage: 500 UNK, UNK
  13. FLAXSEED OIL [Concomitant]
     Dosage: UNK

REACTIONS (3)
  - Headache [Unknown]
  - Fatigue [Unknown]
  - Constipation [Unknown]
